FAERS Safety Report 5043842-4 (Version None)
Quarter: 2006Q2

REPORT INFORMATION
  Report Type: 
  Country: None (occurrence: None)
  Receive Date: 20060629
  Receipt Date: 20060620
  Transmission Date: 20061013
  Serious: Yes (Death, Hospitalization)
  Sender: FDA-Public Use
  Company Number: 2006-06-0398

PATIENT
  Age: 62 Year
  Sex: Female

DRUGS (9)
  1. TEMODAL [Suspect]
     Indication: GLIOBLASTOMA MULTIFORME
     Dosage: 130 MG QD ORAL
     Route: 048
     Dates: start: 20060303, end: 20060404
  2. RADIATION THERAPY [Concomitant]
  3. DILANTIN [Concomitant]
  4. ATENOLOL [Concomitant]
  5. FELODIPINE TABLETS [Concomitant]
  6. VASOTEC [Concomitant]
  7. HYDROCHLOROTHIAZIDE TABLETS [Concomitant]
  8. CLOBAZAM TABLETS [Concomitant]
  9. CITALOPRAM TABLETS [Concomitant]

REACTIONS (4)
  - ANAEMIA [None]
  - FEBRILE NEUTROPENIA [None]
  - LEUKOPENIA [None]
  - THROMBOCYTOPENIA [None]
